FAERS Safety Report 15303739 (Version 1)
Quarter: 2018Q3

REPORT INFORMATION
  Report Type: Report from Study
  Country: US (occurrence: US)
  Receive Date: 20180821
  Receipt Date: 20180821
  Transmission Date: 20181010
  Serious: No
  Sender: FDA-Public Use
  Company Number: US-AMGEN INC.-USASL2018090168

PATIENT
  Age: 80 Year
  Sex: Female

DRUGS (1)
  1. AIMOVIG [Suspect]
     Active Substance: ERENUMAB-AOOE
     Indication: MIGRAINE
     Dosage: 70 MG, UNK
     Route: 065
     Dates: start: 20180606, end: 2018

REACTIONS (12)
  - Adverse drug reaction [Unknown]
  - Constipation [Unknown]
  - Inflammation [Unknown]
  - Injection site pain [Unknown]
  - Joint swelling [Unknown]
  - Feeling hot [Unknown]
  - Pain in extremity [Unknown]
  - Arthritis [Unknown]
  - Peripheral swelling [Unknown]
  - Mobility decreased [Unknown]
  - Mass [Unknown]
  - Injection site swelling [Unknown]

NARRATIVE: CASE EVENT DATE: 2018
